FAERS Safety Report 23070378 (Version 1)
Quarter: 2023Q4

REPORT INFORMATION
  Report Type: Report from Study
  Country: CA (occurrence: CA)
  Receive Date: 20231016
  Receipt Date: 20231016
  Transmission Date: 20240109
  Serious: Yes (Death, Hospitalization, Other)
  Sender: FDA-Public Use
  Company Number: CA-OTSUKA-2022_050347

PATIENT
  Age: 72 Year
  Sex: Female

DRUGS (1)
  1. CEDAZURIDINE\DECITABINE [Suspect]
     Active Substance: CEDAZURIDINE\DECITABINE
     Indication: Chronic myelomonocytic leukaemia
     Dosage: UNK
     Route: 065

REACTIONS (17)
  - Death [Fatal]
  - Leukocytosis [Unknown]
  - Neuropathy peripheral [Unknown]
  - Haemoglobin decreased [Recovering/Resolving]
  - Pneumonia [Unknown]
  - Hyperhidrosis [Unknown]
  - Hypersomnia [Unknown]
  - Polyuria [Unknown]
  - Renal pain [Unknown]
  - Abdominal pain [Unknown]
  - Pain in extremity [Unknown]
  - Cough [Recovered/Resolved]
  - Cough [Recovered/Resolved]
  - Nausea [Unknown]
  - Vomiting [Unknown]
  - Viral infection [Unknown]
  - Platelet count decreased [Unknown]

NARRATIVE: CASE EVENT DATE: 20221001
